FAERS Safety Report 5549663-8 (Version None)
Quarter: 2007Q4

REPORT INFORMATION
  Report Type: 
  Country: None (occurrence: None)
  Receive Date: 20071212
  Receipt Date: 20071205
  Transmission Date: 20080405
  Serious: Yes (Hospitalization)
  Sender: FDA-Public Use
  Company Number: GB-AVENTIS-200721211GDDC

PATIENT
  Age: 53 Year
  Sex: Female
  Weight: 72 kg

DRUGS (5)
  1. DOCETAXEL [Suspect]
     Route: 042
     Dates: start: 20071101, end: 20071101
  2. ANTINEOPLASTIC AGENTS [Suspect]
     Route: 048
     Dates: start: 20071101
  3. DEXAMETHASONE TAB [Concomitant]
     Dosage: DOSE: UNK
     Route: 048
     Dates: start: 20071114, end: 20071116
  4. DOMPERIDONE [Concomitant]
     Dosage: DOSE: UNK
     Route: 048
     Dates: start: 20071116
  5. ONDANSETRON [Concomitant]
     Dosage: DOSE: UNK
     Route: 048
     Dates: start: 20071115

REACTIONS (3)
  - DYSPEPSIA [None]
  - DYSURIA [None]
  - VOMITING [None]
